FAERS Safety Report 4282602-9 (Version None)
Quarter: 2004Q1

REPORT INFORMATION
  Report Type: 
  Country: None (occurrence: None)
  Receive Date: 20040130
  Receipt Date: 20021209
  Transmission Date: 20041129
  Serious: No
  Sender: FDA-Public Use
  Company Number: US-BRISTOL-MYERS SQUIBB COMPANY-12131793

PATIENT
  Age: 50 Year
  Sex: Male
  Weight: 71 kg

DRUGS (3)
  1. SERZONE [Suspect]
     Indication: DEPRESSION
     Dosage: ^4 TO 5 YEARS DURATION^
     Route: 048
  2. SERZONE [Suspect]
     Indication: ATTENTION DEFICIT/HYPERACTIVITY DISORDER
     Dosage: ^4 TO 5 YEARS DURATION^
     Route: 048
  3. RITALIN [Concomitant]

REACTIONS (7)
  - ABNORMAL BEHAVIOUR [None]
  - AMINO ACID METABOLISM DISORDER [None]
  - AMNESIA [None]
  - CONSTIPATION [None]
  - FEELING OF BODY TEMPERATURE CHANGE [None]
  - SENSORY LOSS [None]
  - WEIGHT DECREASED [None]
